FAERS Safety Report 19939150 (Version 1)
Quarter: 2021Q4

REPORT INFORMATION
  Report Type: Spontaneous
  Country: ES (occurrence: ES)
  Receive Date: 20211011
  Receipt Date: 20211011
  Transmission Date: 20220304
  Serious: Yes (Hospitalization, Other)
  Sender: FDA-Public Use
  Company Number: ES-AEMPS-476386

PATIENT
  Age: 79 Year
  Sex: Female

DRUGS (1)
  1. QUETIAPINE [Suspect]
     Active Substance: QUETIAPINE
     Indication: Dementia Alzheimer^s type
     Dosage: 100 MILLIGRAM, ONCE A DAY (100 MG 0-0-1)
     Route: 048
     Dates: start: 20100101

REACTIONS (2)
  - Constipation [Not Recovered/Not Resolved]
  - Intestinal pseudo-obstruction [Recovered/Resolved]

NARRATIVE: CASE EVENT DATE: 20100101
